FAERS Safety Report 21195969 (Version 2)
Quarter: 2022Q3

REPORT INFORMATION
  Report Type: Report from Study
  Country: CA (occurrence: CA)
  Receive Date: 20220810
  Receipt Date: 20220929
  Transmission Date: 20221026
  Serious: Yes (Death, Hospitalization)
  Sender: FDA-Public Use
  Company Number: CA-NOVARTISPH-NVSC2022CA179182

PATIENT
  Sex: Female

DRUGS (2)
  1. KISQALI [Suspect]
     Active Substance: RIBOCICLIB
     Indication: Breast cancer metastatic
     Dosage: 400 MG (400MG FOR 21 DAYS THEN OFF FOR 7 DAYS)
     Route: 048
     Dates: start: 20220226, end: 2022
  2. KISQALI [Suspect]
     Active Substance: RIBOCICLIB
     Dosage: 600 MG
     Route: 048
     Dates: start: 20220226, end: 20220804

REACTIONS (2)
  - Death [Fatal]
  - Aphasia [Unknown]

NARRATIVE: CASE EVENT DATE: 20220101
